FAERS Safety Report 20153101 (Version 1)
Quarter: 2021Q4

REPORT INFORMATION
  Report Type: Spontaneous
  Country: KR (occurrence: KR)
  Receive Date: 20211206
  Receipt Date: 20211206
  Transmission Date: 20220303
  Serious: Yes (Hospitalization, Other)
  Sender: FDA-Public Use
  Company Number: KR-UNIQUE PHARMACEUTICAL LABORATORIES, A DIV. OF JBCPL-2021UNI000052

PATIENT
  Age: 61 Year
  Sex: Female

DRUGS (1)
  1. LITHIUM CARBONATE [Suspect]
     Active Substance: LITHIUM CARBONATE
     Dosage: 300 MILLIGRAM, QD
     Route: 065

REACTIONS (3)
  - Poorly differentiated thyroid carcinoma [Recovering/Resolving]
  - Goitre [Recovering/Resolving]
  - Product use in unapproved indication [Unknown]
